FAERS Safety Report 8594156 (Version 5)
Quarter: 2013Q2

REPORT INFORMATION
  Report Type: Spontaneous
  Country: BR (occurrence: BR)
  Receive Date: 20120604
  Receipt Date: 20130429
  Transmission Date: 20140414
  Serious: Yes (Other)
  Sender: FDA-Public Use
  Company Number: BR-ROCHE-1073081

PATIENT
  Age: 62 Year
  Sex: Male
  Weight: 100 kg

DRUGS (3)
  1. VALIUM [Suspect]
     Indication: DEPRESSION
     Route: 048
  2. RIVOTRIL [Suspect]
     Indication: PRODUCT USED FOR UNKNOWN INDICATION
     Route: 065
  3. VENLAFAXINE [Concomitant]
     Indication: DEPRESSION
     Route: 048

REACTIONS (4)
  - Eye haemorrhage [Not Recovered/Not Resolved]
  - Diarrhoea [Recovered/Resolved]
  - Skin exfoliation [Recovered/Resolved]
  - Eye irritation [Recovered/Resolved]
